FAERS Safety Report 9410318 (Version 3)
Quarter: 2013Q4

REPORT INFORMATION
  Report Type: Report from Study
  Country: NL (occurrence: NL)
  Receive Date: 20130719
  Receipt Date: 20131022
  Transmission Date: 20140711
  Serious: Yes (Death, Hospitalization)
  Sender: FDA-Public Use
  Company Number: NL-INCYTE CORPORATION-2013IN001520

PATIENT
  Age: 69 Year
  Sex: Male
  Weight: 91 kg

DRUGS (13)
  1. INC424 [Suspect]
     Indication: MYELOFIBROSIS
     Dosage: 15 MG, 2DD
     Route: 048
     Dates: start: 20130131, end: 20130220
  2. INC424 [Suspect]
     Dosage: 10 MG, 2DD
     Route: 048
     Dates: start: 20130307, end: 20130628
  3. HYDREA [Concomitant]
     Dosage: UNK
     Dates: start: 20130214
  4. BETAHISTINE [Concomitant]
     Dosage: UNK
  5. METFORMIN [Concomitant]
     Dosage: UNK
  6. MICARDIS PLUS [Concomitant]
  7. RANITIDINE [Concomitant]
  8. SERETIDE DISKUS [Concomitant]
  9. SIMVASTATIN [Concomitant]
     Dosage: UNK
  10. MOVICOLON [Concomitant]
  11. INHIBIN [Concomitant]
  12. OXYNORM [Concomitant]
  13. DUROGESIC [Concomitant]
     Dosage: UNK

REACTIONS (5)
  - Death [Fatal]
  - Respiratory failure [Unknown]
  - Pyrexia [Unknown]
  - Dyspnoea [Unknown]
  - Pneumonia [Unknown]
